FAERS Safety Report 11615491 (Version 2)
Quarter: 2015Q4

REPORT INFORMATION
  Report Type: Report from Study
  Country: US (occurrence: US)
  Receive Date: 20151009
  Receipt Date: 20151105
  Transmission Date: 20160304
  Serious: Yes (Other)
  Sender: FDA-Public Use
  Company Number: US-BIOGENIDEC-2015BI136109

PATIENT
  Age: 56 Year
  Sex: Female
  Weight: 50 kg

DRUGS (20)
  1. TECFIDERA [Suspect]
     Active Substance: DIMETHYL FUMARATE
     Indication: MULTIPLE SCLEROSIS
     Route: 048
     Dates: start: 20130814, end: 20151006
  2. COENZYME Q 10 [Concomitant]
  3. ZOLPIDEM [Concomitant]
     Active Substance: ZOLPIDEM\ZOLPIDEM TARTRATE
  4. TRAMADOL. [Concomitant]
     Active Substance: TRAMADOL
  5. FLUCONAZOLE. [Concomitant]
     Active Substance: FLUCONAZOLE
  6. PREDNISONE. [Concomitant]
     Active Substance: PREDNISONE
  7. CYANOCOBALAMIN. [Concomitant]
     Active Substance: CYANOCOBALAMIN
  8. ELMIRON [Concomitant]
     Active Substance: PENTOSAN POLYSULFATE SODIUM
  9. MEDROL [Concomitant]
     Active Substance: METHYLPREDNISOLONE
  10. VITAMIN B12 [Concomitant]
     Active Substance: CYANOCOBALAMIN
  11. NITROFURANTOIN. [Concomitant]
     Active Substance: NITROFURANTOIN
  12. FERROUS SULFATE [Concomitant]
     Active Substance: FERROUS SULFATE\FERROUS SULFATE, DRIED
  13. LIDOCAINE. [Concomitant]
     Active Substance: LIDOCAINE
  14. MAGNESIUM [Concomitant]
     Active Substance: MAGNESIUM
  15. TRIAMCINOLONE [Concomitant]
     Active Substance: TRIAMCINOLONE
  16. BACLOFEN. [Concomitant]
     Active Substance: BACLOFEN
  17. CLONAZEPAM. [Concomitant]
     Active Substance: CLONAZEPAM
  18. ERGOCALCIFEROL. [Concomitant]
     Active Substance: ERGOCALCIFEROL
  19. LYRICA [Concomitant]
     Active Substance: PREGABALIN
  20. DALFAMPRIDINE [Concomitant]
     Active Substance: DALFAMPRIDINE

REACTIONS (3)
  - Cystitis interstitial [Not Recovered/Not Resolved]
  - Foot deformity [Not Recovered/Not Resolved]
  - Invasive lobular breast carcinoma [Not Recovered/Not Resolved]

NARRATIVE: CASE EVENT DATE: 20140806
